FAERS Safety Report 4725957-0 (Version None)
Quarter: 2005Q3

REPORT INFORMATION
  Report Type: 
  Country: None (occurrence: None)
  Receive Date: 20050727
  Receipt Date: 20050726
  Transmission Date: 20060218
  Serious: Yes (Other)
  Sender: FDA-Public Use
  Company Number: US-GLAXOSMITHKLINE-A0567751A

PATIENT
  Sex: Female

DRUGS (3)
  1. PAXIL [Suspect]
     Indication: DRUG USE FOR UNKNOWN INDICATION
     Route: 065
  2. DEXTROMETHORPHAN HYDROBROMIDE [Suspect]
     Indication: COUGH
     Dosage: 2BT SEE DOSAGE TEXT
     Route: 048
  3. ULTRAM [Concomitant]

REACTIONS (6)
  - DIFFICULTY IN WALKING [None]
  - DRUG INTERACTION [None]
  - DYSARTHRIA [None]
  - INCOHERENT [None]
  - OVERDOSE [None]
  - SEROTONIN SYNDROME [None]
